FAERS Safety Report 7461738-5 (Version None)
Quarter: 2011Q2

REPORT INFORMATION
  Report Type: 
  Country: None (occurrence: None)
  Receive Date: 20110506
  Receipt Date: 20110321
  Transmission Date: 20111010
  Serious: Yes (Hospitalization, Other)
  Sender: FDA-Public Use
  Company Number: US-BAYER-201031834NA

PATIENT
  Age: 38 Year
  Sex: Female
  Weight: 63 kg

DRUGS (7)
  1. YASMIN [Suspect]
     Dosage: DAILY DOSE 1 DF
     Route: 048
     Dates: end: 20081216
  2. YASMIN [Suspect]
     Indication: CONTRACEPTION
     Dosage: UNK
     Route: 048
     Dates: start: 20070912, end: 20081008
  3. YAZ [Suspect]
     Dosage: DAILY DOSE 1 DF
     Route: 048
     Dates: end: 20081216
  4. NASONEX [Concomitant]
     Dosage: 1 SPRAY PER NOSTRIL DAY
  5. YAZ [Suspect]
     Dosage: UNK
     Route: 048
     Dates: start: 20070912, end: 20081008
  6. ZYRTEC [Concomitant]
  7. VITAMINS [Concomitant]
     Dosage: DAILY

REACTIONS (4)
  - PULMONARY EMBOLISM [None]
  - ANXIETY [None]
  - DEEP VEIN THROMBOSIS [None]
  - DEPRESSION [None]
